FAERS Safety Report 18361401 (Version 1)
Quarter: 2020Q4

REPORT INFORMATION
  Report Type: Spontaneous
  Country: DE (occurrence: DE)
  Receive Date: 20201008
  Receipt Date: 20201008
  Transmission Date: 20210114
  Serious: Yes (Other)
  Sender: FDA-Public Use
  Company Number: NVSC2020DE264323

PATIENT
  Age: 35 Year
  Sex: Female
  Weight: 57 kg

DRUGS (1)
  1. VOLTAREN DOLO [Suspect]
     Active Substance: DICLOFENAC
     Indication: SPINAL PAIN
     Dosage: 150 MG, QD ( PRO TAG)
     Route: 048
     Dates: start: 20200917, end: 20200919

REACTIONS (11)
  - Erythema [Recovered/Resolved]
  - Photosensitivity reaction [Recovered/Resolved]
  - Heart rate increased [Recovered/Resolved]
  - Diarrhoea [Not Recovered/Not Resolved]
  - Diarrhoea haemorrhagic [Not Recovered/Not Resolved]
  - Faeces discoloured [Not Recovered/Not Resolved]
  - Chills [Recovered/Resolved]
  - Hypotension [Recovered/Resolved]
  - Pruritus [Recovered/Resolved]
  - Inadequate analgesia [Unknown]
  - Dizziness [Recovered/Resolved]

NARRATIVE: CASE EVENT DATE: 202009
